FAERS Safety Report 25999371 (Version 2)
Quarter: 2025Q4

REPORT INFORMATION
  Report Type: Spontaneous
  Country: US (occurrence: US)
  Receive Date: 20251105
  Receipt Date: 20251209
  Transmission Date: 20260117
  Serious: No
  Sender: CIPLA
  Company Number: US-CIPLA LTD.-2025US13518

PATIENT

DRUGS (1)
  1. LENALIDOMIDE [Suspect]
     Active Substance: LENALIDOMIDE
     Indication: Plasma cell myeloma
     Dosage: 10 MILLIGRAM (10MG ONCE DAILY FOR 21 DAYS, THEN 7 DAYS OFF)
     Route: 048

REACTIONS (3)
  - Hypoaesthesia [Unknown]
  - Intentional dose omission [Unknown]
  - Peripheral swelling [Unknown]
